FAERS Safety Report 13086668 (Version 1)
Quarter: 2017Q1

REPORT INFORMATION
  Report Type: Spontaneous
  Country: US (occurrence: US)
  Receive Date: 20170104
  Receipt Date: 20170104
  Transmission Date: 20170428
  Serious: Yes (Hospitalization)
  Sender: FDA-Public Use
  Company Number: US-BIOMARINAP-US-2016-112277

PATIENT
  Age: 9 Month
  Sex: Female

DRUGS (1)
  1. ALDURAZYME [Suspect]
     Active Substance: LARONIDASE
     Indication: MUCOPOLYSACCHARIDOSIS I
     Dosage: 5.8 MG, QW
     Route: 041
     Dates: start: 20161217

REACTIONS (4)
  - Gastrointestinal tube insertion [Unknown]
  - Ear tube insertion [Unknown]
  - Central venous catheterisation [Unknown]
  - Lumbar puncture [Unknown]

NARRATIVE: CASE EVENT DATE: 201612
